FAERS Safety Report 12976845 (Version 10)
Quarter: 2017Q2

REPORT INFORMATION
  Report Type: Spontaneous
  Country: JP (occurrence: JP)
  Receive Date: 20161128
  Receipt Date: 20170508
  Transmission Date: 20170830
  Serious: Yes (Death)
  Sender: FDA-Public Use
  Company Number: PHJP2016JP034279

PATIENT
  Age: 10 Month
  Sex: Male
  Weight: 7.75 kg

DRUGS (8)
  1. SANDIMMUN INFUSION [Suspect]
     Active Substance: CYCLOSPORINE
     Indication: HISTIOCYTOSIS HAEMATOPHAGIC
     Dosage: 10 MG, QD
     Route: 041
     Dates: start: 20160222, end: 20160317
  2. GASTER [Suspect]
     Active Substance: FAMOTIDINE
     Indication: GASTROINTESTINAL MUCOSAL DISORDER
     Dosage: 4 MG, BID
     Route: 041
     Dates: start: 20151208, end: 20160322
  3. CEFPIROME [Suspect]
     Active Substance: CEFPIROME
     Indication: SEPSIS
     Dosage: 400 MG, QD
     Route: 041
     Dates: start: 20160315, end: 20160326
  4. PREDONINE [Suspect]
     Active Substance: PREDNISOLONE
     Indication: HISTIOCYTOSIS HAEMATOPHAGIC
     Dosage: 10 MG, TID
     Route: 041
     Dates: start: 20160308, end: 20160322
  5. MEROPENEM. [Suspect]
     Active Substance: MEROPENEM
     Indication: SEPSIS
     Dosage: 300 MG, TID
     Route: 041
     Dates: start: 20160219, end: 20160314
  6. LIMETHASON [Suspect]
     Active Substance: DEXAMETHASONE PALMITATE
     Indication: HISTIOCYTOSIS HAEMATOPHAGIC
     Dosage: 2.5 MG, BID
     Route: 041
     Dates: start: 20160222, end: 20160229
  7. DECADRON [Suspect]
     Active Substance: DEXAMETHASONE
     Indication: HISTIOCYTOSIS HAEMATOPHAGIC
     Dosage: 3.3 MG, BID
     Route: 041
     Dates: start: 20160301, end: 20160308
  8. VANCOMYCIN [Suspect]
     Active Substance: VANCOMYCIN
     Indication: SEPSIS
     Dosage: 150 MG, QID
     Route: 041
     Dates: start: 20160225, end: 20160226

REACTIONS (8)
  - Product use in unapproved indication [Unknown]
  - Multiple organ dysfunction syndrome [Fatal]
  - Hepatic function abnormal [Fatal]
  - Candida infection [Fatal]
  - Pulmonary alveolar haemorrhage [Fatal]
  - Respiratory failure [Fatal]
  - Phaehyphomycosis [Fatal]
  - Chronic granulomatous disease [Unknown]

NARRATIVE: CASE EVENT DATE: 20160225
